FAERS Safety Report 10299798 (Version 1)
Quarter: 2014Q3

REPORT INFORMATION
  Report Type: Spontaneous
  Country: HK (occurrence: HK)
  Receive Date: 20140711
  Receipt Date: 20140711
  Transmission Date: 20150326
  Serious: Yes (Hospitalization, Other)
  Sender: FDA-Public Use
  Company Number: HK-PAR PHARMACEUTICAL, INC-2014SCPR009237

PATIENT

DRUGS (1)
  1. KETALAR [Suspect]
     Active Substance: KETAMINE HYDROCHLORIDE
     Indication: DRUG DIVERSION
     Dosage: UNK, UNKNOWN
     Route: 065

REACTIONS (5)
  - Blood alkaline phosphatase increased [None]
  - Drug abuse [Unknown]
  - Alanine aminotransferase increased [None]
  - Hepatotoxicity [Unknown]
  - Biliary dilatation [Recovered/Resolved]
